FAERS Safety Report 6055039-X (Version None)
Quarter: 2009Q1

REPORT INFORMATION
  Report Type: 
  Country: None (occurrence: None)
  Receive Date: 20090122
  Receipt Date: 20090109
  Transmission Date: 20090719
  Serious: Yes (Hospitalization)
  Sender: FDA-Public Use
  Company Number: 2008002762

PATIENT
  Age: 64 Year
  Sex: Female

DRUGS (3)
  1. ERLOTINIB                        (ERLOTINIB) [Suspect]
     Indication: NON-SMALL CELL LUNG CANCER
     Dosage: (150 MG, QD), ORAL
     Route: 048
     Dates: start: 20080719, end: 20081012
  2. BEVACIZUMAB            (INJECTION FOR INFUSION) [Suspect]
     Indication: NON-SMALL CELL LUNG CANCER
     Dosage: (945 MG), INJECTION
     Dates: start: 20080719, end: 20080930
  3. CEFUROXIME [Concomitant]

REACTIONS (5)
  - BLADDER DISORDER [None]
  - DEEP VEIN THROMBOSIS [None]
  - METASTASES TO CENTRAL NERVOUS SYSTEM [None]
  - MUCOSAL HYPERAEMIA [None]
  - URINARY TRACT INFECTION [None]
